FAERS Safety Report 7066514-3 (Version None)
Quarter: 2010Q4

REPORT INFORMATION
  Report Type: 
  Country: None (occurrence: None)
  Receive Date: 20101027
  Receipt Date: 20100401
  Transmission Date: 20110411
  Serious: No
  Sender: FDA-Public Use
  Company Number: US-WYE-H14507610

PATIENT
  Sex: Female
  Weight: 78.54 kg

DRUGS (3)
  1. PREMPRO [Suspect]
     Indication: HOT FLUSH
     Route: 065
     Dates: start: 20100328
  2. VITAMINS [Concomitant]
  3. NEXIUM [Concomitant]

REACTIONS (2)
  - PULSE PRESSURE INCREASED [None]
  - SENSATION OF BLOOD FLOW [None]
